FAERS Safety Report 5071391-6 (Version None)
Quarter: 2006Q3

REPORT INFORMATION
  Report Type: 
  Country: None (occurrence: None)
  Receive Date: 20060804
  Receipt Date: 20060314
  Transmission Date: 20061208
  Serious: No
  Sender: FDA-Public Use
  Company Number: US-AMGEN-US172181

PATIENT
  Sex: Male
  Weight: 81.7 kg

DRUGS (16)
  1. ARANESP [Suspect]
     Indication: RENAL FAILURE CHRONIC
     Route: 058
     Dates: start: 20060118
  2. PRINIVIL [Concomitant]
  3. LASIX [Concomitant]
  4. POTASSIUM [Concomitant]
  5. ISOSORBIDE MONONITRATE [Concomitant]
  6. NITROGLYCERIN [Concomitant]
  7. LANOXIN [Concomitant]
  8. ZETIA [Concomitant]
  9. VITAMIN B COMPLEX CAP [Concomitant]
  10. FERROUS FUMARATE [Concomitant]
  11. VITAMIN B-12 [Concomitant]
  12. NEURONTIN [Concomitant]
  13. POLYCOSE [Concomitant]
  14. KLONOPIN [Concomitant]
  15. COUMADIN [Concomitant]
  16. ZAROXOLYN [Concomitant]

REACTIONS (2)
  - RADICAL PROSTATECTOMY [None]
  - TACHYCARDIA [None]
